FAERS Safety Report 8405200-1 (Version None)
Quarter: 2012Q2

REPORT INFORMATION
  Report Type: 
  Country: None (occurrence: None)
  Receive Date: 20120603
  Receipt Date: 20120524
  Transmission Date: 20120825
  Serious: Yes (Other)
  Sender: FDA-Public Use
  Company Number: JP-VERTEX PHARMACEUTICALS INC.-AE-2012-007856

PATIENT
  Age: 53 Year
  Sex: Male

DRUGS (7)
  1. LOXOPROFEN [Concomitant]
     Route: 048
     Dates: start: 20120307
  2. NEOMALLERMIN [Concomitant]
     Route: 048
     Dates: start: 20120315
  3. REBETOL [Concomitant]
     Route: 048
     Dates: start: 20120307, end: 20120321
  4. MUCOSTA [Concomitant]
     Route: 048
     Dates: start: 20120307
  5. TELAVIC (TELAPREVIR) [Suspect]
     Indication: HEPATITIS C
     Route: 048
     Dates: start: 20120307, end: 20120524
  6. REBETOL [Concomitant]
     Route: 048
     Dates: start: 20120322
  7. PEGINTERFERON ALFA-2B [Concomitant]
     Route: 051
     Dates: start: 20120307

REACTIONS (1)
  - HEPATIC FUNCTION ABNORMAL [None]
